FAERS Safety Report 6396695-6 (Version None)
Quarter: 2009Q4

REPORT INFORMATION
  Report Type: 
  Country: None (occurrence: None)
  Receive Date: 20091012
  Receipt Date: 20090929
  Transmission Date: 20100525
  Serious: Yes (Hospitalization)
  Sender: FDA-Public Use
  Company Number: JP-PFIZER INC-2009262786

PATIENT
  Age: 61 Year

DRUGS (9)
  1. ATORVASTATIN CALCIUM [Suspect]
     Dosage: UNK
     Route: 048
     Dates: end: 20090730
  2. LANSAP [Suspect]
     Indication: IDIOPATHIC THROMBOCYTOPENIC PURPURA
     Dosage: 1 DF, 2X/DAY
     Route: 048
     Dates: start: 20090727, end: 20090729
  3. VOGLIBOSE [Concomitant]
     Dosage: 0.3 MG, 3X/DAY
     Route: 048
  4. CLOPIDOGREL [Concomitant]
     Dosage: 75 MG, 1X/DAY
     Route: 048
     Dates: start: 20070712
  5. ACETYLSALICYLIC ACID [Concomitant]
     Dosage: 100 MG, 1X/DAY
     Route: 048
  6. ISOSORBIDE MONONITRATE [Concomitant]
     Dosage: 20 MG, 2X/DAY
     Route: 048
  7. CARVEDILOL [Concomitant]
     Dosage: 5 MG, 1X/DAY
     Route: 048
  8. FAMOTIDINE [Concomitant]
     Dosage: 10 MG, 1X/DAY
     Route: 048
  9. AMARYL [Concomitant]
     Route: 048

REACTIONS (3)
  - DRUG INTERACTION [None]
  - HYPOGLYCAEMIA [None]
  - RENAL FAILURE [None]
